FAERS Safety Report 23828779 (Version 2)
Quarter: 2024Q2

REPORT INFORMATION
  Report Type: Spontaneous
  Country: US (occurrence: US)
  Receive Date: 20240508
  Receipt Date: 20240522
  Transmission Date: 20240716
  Serious: Yes (Hospitalization, Other)
  Sender: FDA-Public Use
  Company Number: US-PFIZER INC-PV202400057782

PATIENT
  Age: 52 Year
  Sex: Female

DRUGS (4)
  1. ENBREL [Suspect]
     Active Substance: BENZYL ALCOHOL\ETANERCEPT
     Indication: Psoriasis
     Dosage: 50 MG, WEEKLY
     Route: 058
  2. TACROLIMUS [Concomitant]
     Active Substance: TACROLIMUS
     Indication: Liver transplant
     Dosage: 3 MG, DAILY
     Route: 065
  3. PREDNISONE [Concomitant]
     Active Substance: PREDNISONE
     Indication: Liver transplant
     Dosage: 5 MG, DAILY
     Route: 065
  4. EVEROLIMUS [Concomitant]
     Active Substance: EVEROLIMUS
     Indication: Liver transplant
     Dosage: 0.25 MG, DAILY
     Route: 065

REACTIONS (5)
  - Cholangitis [Recovered/Resolved]
  - Urinary tract infection [Recovered/Resolved]
  - Disease recurrence [Recovered/Resolved]
  - Infection [Unknown]
  - Therapeutic response unexpected [Unknown]
